FAERS Safety Report 21917270 (Version 1)
Quarter: 2023Q1

REPORT INFORMATION
  Report Type: Spontaneous
  Country: US (occurrence: None)
  Receive Date: 20230126
  Receipt Date: 20230126
  Transmission Date: 20230417
  Serious: No
  Sender: FDA-Public Use
  Company Number: 2023A017033

PATIENT
  Sex: Male

DRUGS (1)
  1. PULMICORT FLEXHALER [Suspect]
     Active Substance: BUDESONIDE
     Route: 055

REACTIONS (9)
  - Nasopharyngitis [Unknown]
  - Macular degeneration [Unknown]
  - Respiratory disorder [Unknown]
  - Viral infection [Unknown]
  - Visual impairment [Unknown]
  - Intraocular pressure increased [Unknown]
  - Cataract [Unknown]
  - Breath holding [Unknown]
  - Product packaging quantity issue [Unknown]
